FAERS Safety Report 18895698 (Version 1)
Quarter: 2021Q1

REPORT INFORMATION
  Report Type: Spontaneous
  Country: US (occurrence: US)
  Receive Date: 20210215
  Receipt Date: 20210215
  Transmission Date: 20210420
  Serious: No
  Sender: FDA-Public Use
  Company Number: US-MYLANLABS-2021M1003991

PATIENT
  Age: 38 Year
  Sex: Female
  Weight: 52 kg

DRUGS (1)
  1. XULANE [Suspect]
     Active Substance: ETHINYL ESTRADIOL\NORELGESTROMIN
     Indication: ENDOMETRIOSIS
     Dosage: 150/35 MCG/DAY, 1 PATCH WEEKLY
     Route: 062
     Dates: start: 20210115

REACTIONS (3)
  - Off label use [Unknown]
  - Abdominal pain [Not Recovered/Not Resolved]
  - Product adhesion issue [Not Recovered/Not Resolved]

NARRATIVE: CASE EVENT DATE: 20210115
